FAERS Safety Report 18721339 (Version 1)
Quarter: 2021Q1

REPORT INFORMATION
  Report Type: Report from Study
  Country: BR (occurrence: BR)
  Receive Date: 20210109
  Receipt Date: 20210109
  Transmission Date: 20210419
  Serious: Yes (Death, Hospitalization)
  Sender: FDA-Public Use
  Company Number: BR-UCBSA-2021000945

PATIENT
  Age: 52 Year
  Sex: Female
  Weight: 70 kg

DRUGS (1)
  1. CERTOLIZUMAB PEGOL RA [Suspect]
     Active Substance: CERTOLIZUMAB PEGOL
     Indication: RHEUMATOID ARTHRITIS
     Dosage: 200 MILLIGRAM, EV 15 DAYS
     Route: 058
     Dates: start: 20190801, end: 202011

REACTIONS (5)
  - Pneumonia [Fatal]
  - Sepsis [Fatal]
  - Localised infection [Fatal]
  - Lung abscess [Fatal]
  - Complication associated with device [Fatal]

NARRATIVE: CASE EVENT DATE: 202011
